FAERS Safety Report 15669815 (Version 1)
Quarter: 2018Q4

REPORT INFORMATION
  Report Type: Spontaneous
  Country: AU (occurrence: AU)
  Receive Date: 20181129
  Receipt Date: 20181129
  Transmission Date: 20190205
  Serious: Yes (Other)
  Sender: FDA-Public Use
  Company Number: AU-US WORLDMEDS, LLC-USW201811-001799

PATIENT
  Sex: Female

DRUGS (3)
  1. APOMORPHINE HYDROCHLORIDE [Suspect]
     Active Substance: APOMORPHINE HYDROCHLORIDE
     Indication: PRODUCT USED FOR UNKNOWN INDICATION
     Route: 058
  2. STALEVO [Concomitant]
     Active Substance: CARBIDOPA\ENTACAPONE\LEVODOPA
  3. MADOPAR RAPID [Concomitant]

REACTIONS (4)
  - Hypertension [Unknown]
  - Soft tissue swelling [Unknown]
  - Mobility decreased [Unknown]
  - Device use error [Unknown]
